FAERS Safety Report 4343905-2 (Version None)
Quarter: 2004Q2

REPORT INFORMATION
  Report Type: 
  Country: None (occurrence: None)
  Receive Date: 20040421
  Receipt Date: 20040421
  Transmission Date: 20050107
  Serious: Yes (Hospitalization)
  Sender: FDA-Public Use
  Company Number: None

PATIENT
  Age: 73 Year
  Sex: Male
  Weight: 101 kg

DRUGS (7)
  1. KENALOG [Suspect]
     Dosage: 40 MG IA
     Dates: start: 20031017
  2. NEXIUM [Concomitant]
  3. ADVAIR DISKUS 100/50 [Concomitant]
  4. SINGULAIR [Concomitant]
  5. PLAVIX [Concomitant]
  6. ASOPT/LUMIGAN/BETOXICS- EYE DROPS [Concomitant]
  7. LIPITOR [Concomitant]

REACTIONS (4)
  - DRUG INEFFECTIVE [None]
  - JOINT RANGE OF MOTION DECREASED [None]
  - JOINT SWELLING [None]
  - PAIN [None]
